FAERS Safety Report 6956837-8 (Version None)
Quarter: 2010Q3

REPORT INFORMATION
  Report Type: 
  Country: None (occurrence: None)
  Receive Date: 20100830
  Receipt Date: 20100823
  Transmission Date: 20110219
  Serious: Yes (Life-Threatening, Hospitalization)
  Sender: FDA-Public Use
  Company Number: PHHY2010NL53399

PATIENT
  Sex: Female

DRUGS (3)
  1. S-OIV FOCETRIA 7.5AG 100% MF59 V-V111-A+INJ [Suspect]
     Route: 030
     Dates: start: 20091118, end: 20091118
  2. S-OIV FOCETRIA 7.5AG 100% MF59 V-V111-A+INJ [Suspect]
     Route: 030
     Dates: start: 20091209, end: 20091209
  3. SYNTOCINON [Suspect]

REACTIONS (5)
  - BRADYCARDIA [None]
  - CAESAREAN SECTION [None]
  - DRUG EXPOSURE DURING PREGNANCY [None]
  - FOETAL DISTRESS SYNDROME [None]
  - VENTOUSE EXTRACTION [None]
